FAERS Safety Report 14337575 (Version 1)
Quarter: 2017Q4

REPORT INFORMATION
  Report Type: Spontaneous
  Country: US (occurrence: US)
  Receive Date: 20171228
  Receipt Date: 20171228
  Transmission Date: 20180321
  Serious: No
  Sender: FDA-Public Use
  Company Number: None

PATIENT
  Age: 55 Year
  Sex: Male

DRUGS (19)
  1. MELATONIN [Suspect]
     Active Substance: MELATONIN
  2. ZENPEP [Suspect]
     Active Substance: PANCRELIPASE AMYLASE\PANCRELIPASE LIPASE\PANCRELIPASE PROTEASE
     Indication: CYSTIC FIBROSIS
     Dosage: FREQUENCY - 6 WITH MEALS - 3 WITH SNACKS?DOSE - 20,000 U
     Route: 048
     Dates: start: 20170214
  3. SODIUM CHLORIDE. [Concomitant]
     Active Substance: SODIUM CHLORIDE
  4. XOPENEX [Concomitant]
     Active Substance: LEVALBUTEROL HYDROCHLORIDE
  5. TACROLIMUS. [Concomitant]
     Active Substance: TACROLIMUS
  6. MUCINEX [Concomitant]
     Active Substance: GUAIFENESIN
  7. LOPERAMIDE [Concomitant]
     Active Substance: LOPERAMIDE
  8. TOBRAMYCIN. [Concomitant]
     Active Substance: TOBRAMYCIN
  9. ITRACONAZOLE. [Concomitant]
     Active Substance: ITRACONAZOLE
  10. NIFEDICAL XL [Concomitant]
     Active Substance: NIFEDIPINE
  11. LOPRESSOR [Concomitant]
     Active Substance: METOPROLOL TARTRATE
  12. ZITHROMAX [Concomitant]
     Active Substance: AZITHROMYCIN DIHYDRATE
  13. TYLENOL [Concomitant]
     Active Substance: ACETAMINOPHEN
  14. NORTRIPTYLINE [Concomitant]
     Active Substance: NORTRIPTYLINE
  15. OMEPRAZOLE. [Concomitant]
     Active Substance: OMEPRAZOLE
  16. MULTI-VITAMIN [Concomitant]
     Active Substance: .ALPHA.-TOCOPHEROL ACETATE, DL-\ASCORBIC ACID\CYANOCOBALAMIN\FLUORIDE ION\FOLIC ACID\NIACIN\PYRIDOXINE\RIBOFLAVIN\THIAMINE\VITAMIN A\VITAMIN D
  17. PSYLLIUM [Concomitant]
     Active Substance: PLANTAGO SEED
  18. ZORTRESS [Concomitant]
     Active Substance: EVEROLIMUS
  19. VITAMIN E [Concomitant]
     Active Substance: .ALPHA.-TOCOPHEROL

REACTIONS (3)
  - Muscle spasms [None]
  - Abnormal faeces [None]
  - Diarrhoea [None]

NARRATIVE: CASE EVENT DATE: 201712
